FAERS Safety Report 6154943-1 (Version None)
Quarter: 2009Q2

REPORT INFORMATION
  Report Type: 
  Country: None (occurrence: None)
  Receive Date: 20090414
  Receipt Date: 20090331
  Transmission Date: 20091009
  Serious: Yes (Other)
  Sender: FDA-Public Use
  Company Number: US-PFIZER INC-2005051690

PATIENT
  Sex: Female
  Weight: 58.957 kg

DRUGS (2)
  1. PROVERA [Suspect]
     Indication: HORMONE REPLACEMENT THERAPY
     Dosage: 25 MG, UNK
     Route: 065
     Dates: start: 19910108, end: 19931201
  2. PREMARIN [Suspect]
     Indication: HORMONE REPLACEMENT THERAPY
     Dosage: 125MG, 625MG
     Route: 065
     Dates: start: 19800115, end: 19931201

REACTIONS (1)
  - BREAST CANCER FEMALE [None]
